FAERS Safety Report 8400401-0 (Version None)
Quarter: 2012Q2

REPORT INFORMATION
  Report Type: 
  Country: None (occurrence: None)
  Receive Date: 20120531
  Receipt Date: 20120524
  Transmission Date: 20120825
  Serious: Yes (Other)
  Sender: FDA-Public Use
  Company Number: US-ABBOTT-12P-163-0936811-00

PATIENT
  Age: 58 Year
  Sex: Male

DRUGS (3)
  1. AMEND [Suspect]
     Indication: PRODUCT USED FOR UNKNOWN INDICATION
  2. HUMIRA [Suspect]
     Indication: PSORIASIS
     Dates: end: 20090501
  3. VITAMIN TAB [Concomitant]
     Indication: PRODUCT USED FOR UNKNOWN INDICATION

REACTIONS (3)
  - TESTIS CANCER [None]
  - BLOOD CHOLESTEROL INCREASED [None]
  - PRURITUS GENERALISED [None]
